FAERS Safety Report 22236974 (Version 1)
Quarter: 2023Q2

REPORT INFORMATION
  Report Type: Spontaneous
  Country: None (occurrence: US)
  Receive Date: 20230421
  Receipt Date: 20230421
  Transmission Date: 20230722
  Serious: No
  Sender: FDA-Public Use
  Company Number: US-Amphastar Pharmaceuticals, Inc.-2140634

PATIENT
  Age: 59 Year
  Sex: Female
  Weight: 87.273 kg

DRUGS (3)
  1. GLUCAGON [Suspect]
     Active Substance: GLUCAGON
     Indication: Diabetes mellitus
  2. TRULICITY [Concomitant]
     Active Substance: DULAGLUTIDE
  3. PREGABALIN [Concomitant]
     Active Substance: PREGABALIN

REACTIONS (1)
  - Product dose omission issue [Recovered/Resolved]

NARRATIVE: CASE EVENT DATE: 20230323
